FAERS Safety Report 24332081 (Version 1)
Quarter: 2024Q3

REPORT INFORMATION
  Report Type: Spontaneous
  Country: US (occurrence: US)
  Receive Date: 20240918
  Receipt Date: 20240918
  Transmission Date: 20241017
  Serious: Yes (Hospitalization, Other)
  Sender: PHARMASCIENCE
  Company Number: US-Pharmascience Inc.-2161731

PATIENT
  Age: 54 Year
  Sex: Female

DRUGS (3)
  1. GANCICLOVIR SODIUM [Suspect]
     Active Substance: GANCICLOVIR SODIUM
     Indication: Cytomegalovirus infection
  2. PREDNISONE [Concomitant]
     Active Substance: PREDNISONE
  3. TACROLIMUS [Concomitant]
     Active Substance: TACROLIMUS

REACTIONS (4)
  - Respiratory failure [Recovering/Resolving]
  - Drug effect less than expected [Unknown]
  - Drug resistance mutation [Unknown]
  - Pyrexia [Unknown]
